FAERS Safety Report 6429622-3 (Version None)
Quarter: 2009Q4

REPORT INFORMATION
  Report Type: 
  Country: None (occurrence: None)
  Receive Date: 20091103
  Receipt Date: 20091019
  Transmission Date: 20100525
  Serious: Yes (Hospitalization)
  Sender: FDA-Public Use
  Company Number: 02100-JPN-06-0099

PATIENT
  Age: 73 Year
  Sex: Male
  Weight: 60.5 kg

DRUGS (2)
  1. PLETAL [Suspect]
     Indication: CEREBRAL INFARCTION
     Dosage: 100 MG, BID, ORAL
     Route: 048
     Dates: start: 20060302, end: 20060308
  2. URINORM (BENZBROMARONE) TABLET [Concomitant]

REACTIONS (5)
  - ABDOMINAL DISCOMFORT [None]
  - DIZZINESS [None]
  - GASTROINTESTINAL DISORDER [None]
  - MALAISE [None]
  - VOMITING [None]
